FAERS Safety Report 16149322 (Version 1)
Quarter: 2019Q2

REPORT INFORMATION
  Report Type: Spontaneous
  Country: DE (occurrence: DE)
  Receive Date: 20190402
  Receipt Date: 20190402
  Transmission Date: 20190711
  Serious: Yes (Hospitalization)
  Sender: FDA-Public Use
  Company Number: DE-FERRINGPH-2019FE01708

PATIENT

DRUGS (5)
  1. INZOLEN [Concomitant]
     Active Substance: MAGNESIUM ASPARTATE\POTASSIUM ASPARTATE
     Indication: ELECTROLYTE IMBALANCE
     Dosage: UNK
     Route: 042
  2. BEPANTHEN                          /00178901/ [Concomitant]
     Active Substance: DEXPANTHENOL
     Indication: SKIN DISORDER
     Dosage: UNK
  3. HEPARIN [Concomitant]
     Active Substance: HEPARIN SODIUM
     Indication: THROMBOSIS PROPHYLAXIS
     Dosage: UNK
     Route: 065
  4. MINIRIN [Suspect]
     Active Substance: DESMOPRESSIN ACETATE
     Indication: DIABETES INSIPIDUS
     Dosage: 0.5 ?G, 1 TIME DAILY
     Route: 045
     Dates: start: 19980526, end: 19980615
  5. SOLUVIT                            /01591701/ [Concomitant]
     Active Substance: VITAMINS
     Indication: MALNUTRITION
     Dosage: UNK
     Route: 042

REACTIONS (3)
  - Bronchospasm [Recovered/Resolved]
  - Flushing [Recovered/Resolved]
  - Cold sweat [Recovered/Resolved]

NARRATIVE: CASE EVENT DATE: 19980614
